FAERS Safety Report 4398461-X (Version None)
Quarter: 2004Q3

REPORT INFORMATION
  Report Type: 
  Country: None (occurrence: None)
  Receive Date: 20040715
  Receipt Date: 20040704
  Transmission Date: 20050211
  Serious: Yes (Hospitalization)
  Sender: FDA-Public Use
  Company Number: US-ROCHE-373700

PATIENT
  Age: 14 Year
  Sex: Female

DRUGS (1)
  1. ACCUTANE [Suspect]
     Indication: ACNE
     Route: 048
     Dates: start: 19920615

REACTIONS (20)
  - ANXIETY [None]
  - ARTHRALGIA [None]
  - AUTOIMMUNE DISORDER [None]
  - BRAIN OEDEMA [None]
  - CHRONIC FATIGUE SYNDROME [None]
  - DEPRESSION [None]
  - FIBROMYALGIA [None]
  - HYPOGLYCAEMIA [None]
  - HYPOTHYROIDISM [None]
  - INFREQUENT BOWEL MOVEMENTS [None]
  - KIDNEY ENLARGEMENT [None]
  - MIGRAINE [None]
  - MYALGIA [None]
  - PANIC ATTACK [None]
  - SELF MUTILATION [None]
  - SPINAL DISORDER [None]
  - SUICIDAL IDEATION [None]
  - SWEAT GLAND DISORDER [None]
  - SWELLING [None]
  - TACHYCARDIA [None]
